FAERS Safety Report 7020099-6 (Version None)
Quarter: 2010Q3

REPORT INFORMATION
  Report Type: 
  Country: None (occurrence: None)
  Receive Date: 20100929
  Receipt Date: 20100923
  Transmission Date: 20110219
  Serious: Yes (Death)
  Sender: FDA-Public Use
  Company Number: US-CELGENEUS-163-21880-10082436

PATIENT
  Sex: Female
  Weight: 79.813 kg

DRUGS (1)
  1. REVLIMID [Suspect]
     Indication: MULTIPLE MYELOMA
     Route: 048
     Dates: start: 20100701

REACTIONS (3)
  - ASPERGILLOSIS [None]
  - PNEUMONIA [None]
  - SEPSIS [None]
